FAERS Safety Report 22242045 (Version 9)
Quarter: 2024Q1

REPORT INFORMATION
  Report Type: Report from Study
  Country: US (occurrence: US)
  Receive Date: 20230421
  Receipt Date: 20240328
  Transmission Date: 20240410
  Serious: Yes (Hospitalization)
  Sender: FDA-Public Use
  Company Number: US-002147023-NVSC2023US091594

PATIENT
  Sex: Female

DRUGS (1)
  1. KESIMPTA [Suspect]
     Active Substance: OFATUMUMAB
     Indication: Multiple sclerosis
     Dosage: UNK
     Route: 065
     Dates: start: 20230407

REACTIONS (5)
  - Pain in extremity [Unknown]
  - Weight increased [Unknown]
  - Peripheral swelling [Unknown]
  - Inflammation [Unknown]
  - Injection site pain [Recovered/Resolved]
